FAERS Safety Report 15639795 (Version 4)
Quarter: 2019Q2

REPORT INFORMATION
  Report Type: Report from Study
  Country: FR (occurrence: FR)
  Receive Date: 20181120
  Receipt Date: 20190607
  Transmission Date: 20190711
  Serious: Yes (Other)
  Sender: FDA-Public Use
  Company Number: PHHY2018FR158504

PATIENT
  Age: 65 Year
  Sex: Male
  Weight: 96.6 kg

DRUGS (4)
  1. CORTANCYL [Suspect]
     Active Substance: PREDNISONE
     Dosage: 10 MG, UNK
     Route: 065
     Dates: start: 20181123
  2. ADOPORT [Suspect]
     Active Substance: TACROLIMUS
     Indication: RENAL TRANSPLANT
     Dosage: 14 MG, UNK
     Route: 048
     Dates: start: 20181025
  3. CORTANCYL [Suspect]
     Active Substance: PREDNISONE
     Dosage: 15 MG, UNK
     Route: 065
     Dates: start: 20181109, end: 20181122
  4. CORTANCYL [Suspect]
     Active Substance: PREDNISONE
     Indication: IMMUNOSUPPRESSION
     Dosage: 20 MG, UNK
     Route: 065
     Dates: start: 20181027, end: 20181108

REACTIONS (3)
  - Oliguria [Recovered/Resolved]
  - Diabetes mellitus inadequate control [Recovered/Resolved]
  - Postoperative hypertension [Recovered/Resolved]

NARRATIVE: CASE EVENT DATE: 20181025
